FAERS Safety Report 21780801 (Version 2)
Quarter: 2023Q1

REPORT INFORMATION
  Report Type: Report from Study
  Country: BE (occurrence: BE)
  Receive Date: 20221227
  Receipt Date: 20230105
  Transmission Date: 20230417
  Serious: Yes (Hospitalization, Other)
  Sender: FDA-Public Use
  Company Number: BE-LEO Pharma-347919

PATIENT
  Age: 52 Year
  Sex: Female
  Weight: 75 kg

DRUGS (3)
  1. BRODALUMAB [Suspect]
     Active Substance: BRODALUMAB
     Indication: Psoriasis
     Dosage: 210MG/1,5ML, WEEK 0, 1, 2 AND THEN EVERY 2 WEEKS (210 MG,1 IN 2 WK)
     Route: 058
     Dates: start: 20211102, end: 20220218
  2. BRODALUMAB [Suspect]
     Active Substance: BRODALUMAB
     Dosage: 210MG/1,5ML, WEEK 0, 1, 2 AND THEN EVERY 2 WEEKS (210 MG,1 IN 2 WK)
     Route: 058
     Dates: start: 20220520
  3. LEVOTHYROXINE [Concomitant]
     Active Substance: LEVOTHYROXINE
     Indication: Product used for unknown indication

REACTIONS (3)
  - Thyroid adenoma [Recovered/Resolved]
  - COVID-19 [Recovering/Resolving]
  - Therapy interrupted [Unknown]

NARRATIVE: CASE EVENT DATE: 20220218
